FAERS Safety Report 18360100 (Version 1)
Quarter: 2020Q4

REPORT INFORMATION
  Report Type: Spontaneous
  Country: US (occurrence: US)
  Receive Date: 20201007
  Receipt Date: 20201007
  Transmission Date: 20210114
  Serious: No
  Sender: FDA-Public Use
  Company Number: None

PATIENT
  Age: 40 Year
  Sex: Female

DRUGS (1)
  1. HYDROXYPROGEST SDV 250MG/ML [Suspect]
     Active Substance: HYDROXYPROGESTERONE CAPROATE
     Route: 058
     Dates: start: 202006

REACTIONS (1)
  - Incorrect route of product administration [None]

NARRATIVE: CASE EVENT DATE: 20200610
